FAERS Safety Report 11779285 (Version 1)
Quarter: 2015Q4

REPORT INFORMATION
  Report Type: Spontaneous
  Country: CA (occurrence: CA)
  Receive Date: 20151125
  Receipt Date: 20151125
  Transmission Date: 20160304
  Serious: Yes (Life-Threatening)
  Sender: FDA-Public Use
  Company Number: CA-TEVA-612138ACC

PATIENT
  Sex: Male
  Weight: 108.96 kg

DRUGS (1)
  1. TEVA-DIVALPROEX [Suspect]
     Active Substance: DIVALPROEX SODIUM
     Indication: OBSESSIVE-COMPULSIVE DISORDER
     Dosage: 3 DOSAGE FORMS DAILY;
     Route: 048

REACTIONS (3)
  - Obsessive-compulsive disorder [Recovered/Resolved]
  - Impulse-control disorder [Recovered/Resolved]
  - Drug ineffective [Recovered/Resolved]
